FAERS Safety Report 5314418-6 (Version None)
Quarter: 2007Q2

REPORT INFORMATION
  Report Type: 
  Country: None (occurrence: None)
  Receive Date: 20070502
  Receipt Date: 20070423
  Transmission Date: 20071010
  Serious: Yes (Hospitalization, Other)
  Sender: FDA-Public Use
  Company Number: ES-JNJFOC-20070202190

PATIENT
  Age: 26 Year
  Sex: Female

DRUGS (3)
  1. REMICADE [Suspect]
     Indication: CROHN'S DISEASE
     Dosage: 21 INFUSIONS RECEIVED
     Route: 065
  2. METHOTREXATE [Concomitant]
     Route: 048
  3. DACORTIN [Concomitant]
     Dosage: 30MG WITH DESCENDING DOSE

REACTIONS (1)
  - PULMONARY TUBERCULOSIS [None]
